FAERS Safety Report 8714417 (Version 3)
Quarter: 2012Q4

REPORT INFORMATION
  Report Type: 
  Country: ES (occurrence: ES)
  Receive Date: 20120809
  Receipt Date: 20121030
  Transmission Date: 20130627
  Serious: Yes (Life-Threatening, Hospitalization, Other)
  Sender: FDA-Public Use
  Company Number: ES-GENZYME-THYM-1003361

PATIENT
  Age: 58 Year
  Sex: Female
  Weight: 61 kg

DRUGS (6)
  1. THYMOGLOBULINE [Suspect]
     Indication: PROPHYLAXIS AGAINST TRANSPLANT REJECTION
     Dosage: 2.5 mg/kg, qd (day 3 to 1)
     Route: 042
     Dates: start: 20120325, end: 20120327
  2. THYMOGLOBULINE [Suspect]
     Indication: PROPHYLAXIS AGAINST GRAFT VERSUS HOST DISEASE
  3. FLUDARA [Suspect]
     Indication: BONE MARROW CONDITIONING REGIMEN
     Dosage: 30 mg/m2, qd (days 7 to 3)
     Route: 042
     Dates: start: 20120321, end: 20120325
  4. TREOSULFAN [Concomitant]
     Indication: BONE MARROW CONDITIONING REGIMEN
     Dosage: 14000 mg/m2, qd (days 6 to 4, more than 23.800 mg)
     Route: 042
     Dates: start: 20120322, end: 20120324
  5. CYCLOSPORIN [Concomitant]
     Indication: PROPHYLAXIS AGAINST GRAFT VERSUS HOST DISEASE
     Dosage: UNK
     Route: 065
  6. METHOTREXATE [Concomitant]
     Indication: PROPHYLAXIS AGAINST GRAFT VERSUS HOST DISEASE
     Dosage: UNK
     Route: 065

REACTIONS (12)
  - Neck mass [Unknown]
  - Lymphadenopathy [Unknown]
  - Blood lactate dehydrogenase increased [Unknown]
  - Splenomegaly [Unknown]
  - Hepatic cyst [Unknown]
  - Decreased appetite [Unknown]
  - Liver function test abnormal [Unknown]
  - Abdominal pain upper [Unknown]
  - Pyrexia [Unknown]
  - Post transplant lymphoproliferative disorder [Not Recovered/Not Resolved]
  - Cytomegalovirus infection [Unknown]
  - Epstein-Barr virus infection [Unknown]
